FAERS Safety Report 6831380-5 (Version None)
Quarter: 2010Q3

REPORT INFORMATION
  Report Type: 
  Country: None (occurrence: None)
  Receive Date: 20100712
  Receipt Date: 20100701
  Transmission Date: 20110219
  Serious: Yes (Other)
  Sender: FDA-Public Use
  Company Number: US-AMGEN-QUU402835

PATIENT
  Sex: Female

DRUGS (12)
  1. ENBREL [Suspect]
     Indication: PSORIATIC ARTHROPATHY
     Route: 058
     Dates: start: 20100221
  2. CELLCEPT [Concomitant]
  3. ASPIRIN [Concomitant]
  4. LEVOTHYROXINE [Concomitant]
  5. DIFLUCAN [Concomitant]
  6. FOLIC ACID [Concomitant]
  7. TYLENOL W/ CODEINE NO. 3 [Concomitant]
  8. VICODIN [Concomitant]
  9. CITALOPRAM HYDROBROMIDE [Concomitant]
  10. PLAQUENIL [Concomitant]
  11. ALPRAZOLAM [Concomitant]
  12. CLONAZEPAM [Concomitant]

REACTIONS (13)
  - CONTUSION [None]
  - COORDINATION ABNORMAL [None]
  - FALL [None]
  - HEAD INJURY [None]
  - INSOMNIA [None]
  - LOSS OF PROPRIOCEPTION [None]
  - MUSCULAR WEAKNESS [None]
  - POST-TRAUMATIC HEADACHE [None]
  - RASH PRURITIC [None]
  - SENSORY LOSS [None]
  - STRESS [None]
  - THINKING ABNORMAL [None]
  - VISION BLURRED [None]
